FAERS Safety Report 14017658 (Version 3)
Quarter: 2018Q3

REPORT INFORMATION
  Report Type: Spontaneous
  Country: NL (occurrence: NL)
  Receive Date: 20170927
  Receipt Date: 20180717
  Transmission Date: 20181010
  Serious: Yes (Hospitalization, Other)
  Sender: FDA-Public Use
  Company Number: NL-009507513-0601NLD00001

PATIENT
  Age: 47 Year
  Sex: Male
  Weight: 140 kg

DRUGS (6)
  1. SPIRIVA [Concomitant]
     Active Substance: TIOTROPIUM BROMIDE MONOHYDRATE
     Dosage: 18 MICROGRAM, QD
     Route: 055
  2. MONTELUKAST SODIUM. [Suspect]
     Active Substance: MONTELUKAST SODIUM
     Indication: ASTHMA
     Dosage: 10 MG, QD
     Route: 048
     Dates: start: 20030602, end: 20051108
  3. THEOLAIR SR [Concomitant]
     Dosage: 250 MG, BID
     Route: 048
  4. SERETIDE [Concomitant]
     Active Substance: FLUTICASONE PROPIONATE\SALMETEROL XINAFOATE
     Dosage: 2 MICROGRAM, QD
     Route: 055
  5. LISINOPRIL. [Concomitant]
     Active Substance: LISINOPRIL
     Dosage: 5 MG, QD
     Route: 048
  6. COMBIVENT [Concomitant]
     Active Substance: ALBUTEROL SULFATE\IPRATROPIUM BROMIDE
     Dosage: 4 (UNIT NOT PROVIDED), QD
     Route: 055

REACTIONS (4)
  - Sleep attacks [Unknown]
  - Myalgia [Recovered/Resolved]
  - Myocardial infarction [Unknown]
  - Paraesthesia [Unknown]

NARRATIVE: CASE EVENT DATE: 200503
